FAERS Safety Report 10063504 (Version 1)
Quarter: 2014Q2

REPORT INFORMATION
  Report Type: Spontaneous
  Country: US (occurrence: None)
  Receive Date: 20140402
  Receipt Date: 20140402
  Transmission Date: 20141212
  Serious: Yes (Other)
  Sender: FDA-Public Use
  Company Number: 2013STPI000401

PATIENT
  Age: 28 Month
  Sex: Female
  Weight: 16.6 kg

DRUGS (2)
  1. ONCASPAR INJECTION (PEGASPARGASE) INJECTION, 3750/5IU/ML [Suspect]
     Indication: ACUTE LYMPHOCYTIC LEUKAEMIA
     Route: 042
     Dates: start: 20130923, end: 20130923
  2. SULFAMETHOXAZOLE AND TRIMETHOPRIM (SULFAMETHOXAZOLE, TRIMETHOPRIM) [Concomitant]

REACTIONS (1)
  - Anaphylactic reaction [None]
